FAERS Safety Report 13803593 (Version 1)
Quarter: 2017Q3

REPORT INFORMATION
  Report Type: Spontaneous
  Country: US (occurrence: US)
  Receive Date: 20170728
  Receipt Date: 20170728
  Transmission Date: 20171127
  Serious: No
  Sender: FDA-Public Use
  Company Number: US-ACCORD-044809

PATIENT
  Age: 76 Year
  Sex: Female

DRUGS (1)
  1. LETROZOLE ACCORD [Suspect]
     Active Substance: LETROZOLE
     Indication: PRODUCT USED FOR UNKNOWN INDICATION
     Dosage: STRENGTH 2.5 MG
     Route: 048
     Dates: start: 20161009

REACTIONS (2)
  - Nasopharyngitis [Unknown]
  - Chills [Unknown]
